FAERS Safety Report 6814251-X (Version None)
Quarter: 2010Q3

REPORT INFORMATION
  Report Type: 
  Country: None (occurrence: None)
  Receive Date: 20100702
  Receipt Date: 20100623
  Transmission Date: 20110219
  Serious: Yes (Other)
  Sender: FDA-Public Use
  Company Number: US-JNJFOC-20100606130

PATIENT
  Sex: Male
  Weight: 92.53 kg

DRUGS (9)
  1. DURAGESIC-100 [Suspect]
     Indication: GUN SHOT WOUND
     Dosage: 100 MCG+ 50 MCG
     Route: 062
     Dates: start: 20020101, end: 20091101
  2. DURAGESIC-100 [Suspect]
     Indication: PAIN
     Dosage: 100 MCG+ 50 MCG
     Route: 062
     Dates: start: 20020101, end: 20091101
  3. FENTANYL [Suspect]
     Indication: GUN SHOT WOUND
     Dosage: 100 MCG+50 MCG
     Route: 062
     Dates: start: 20091101, end: 20100301
  4. FENTANYL [Suspect]
     Indication: PAIN
     Dosage: 100 MCG+50 MCG
     Route: 062
     Dates: start: 20091101, end: 20100301
  5. DURAGESIC-100 [Suspect]
     Dosage: 100 MCG+50 MCG
     Route: 062
     Dates: start: 20100301
  6. DURAGESIC-100 [Suspect]
     Dosage: 100 MCG+50 MCG
     Route: 062
     Dates: start: 20100301
  7. FENTANYL [Suspect]
     Dosage: 100 MCG+50 MCG
     Route: 062
     Dates: start: 20100301, end: 20100301
  8. FENTANYL [Suspect]
     Dosage: 100 MCG+50 MCG
     Route: 062
     Dates: start: 20100301, end: 20100301
  9. OXYCODONE HCL [Concomitant]
     Indication: BREAKTHROUGH PAIN
     Route: 065

REACTIONS (8)
  - DEPRESSION [None]
  - DRUG DOSE OMISSION [None]
  - DRUG EFFECT DECREASED [None]
  - DRUG INEFFECTIVE [None]
  - HYPERTENSION [None]
  - NEUROPATHY PERIPHERAL [None]
  - PAIN [None]
  - TYPE 1 DIABETES MELLITUS [None]
